FAERS Safety Report 13302346 (Version 1)
Quarter: 2017Q1

REPORT INFORMATION
  Report Type: Spontaneous
  Country: RO (occurrence: RO)
  Receive Date: 20170307
  Receipt Date: 20170307
  Transmission Date: 20170428
  Serious: Yes (Other)
  Sender: FDA-Public Use
  Company Number: RO-SA-2017SA036801

PATIENT
  Age: 18 Week
  Sex: Male

DRUGS (4)
  1. INSULIN DETEMIR [Concomitant]
     Active Substance: INSULIN DETEMIR
     Indication: NEONATAL DIABETES MELLITUS
     Dosage: IN THE MORNING DOSE:2 UNIT(S)
  2. INSULIN DETEMIR [Concomitant]
     Active Substance: INSULIN DETEMIR
     Indication: NEONATAL DIABETES MELLITUS
  3. INSULIN DETEMIR [Concomitant]
     Active Substance: INSULIN DETEMIR
     Indication: NEONATAL DIABETES MELLITUS
     Dosage: DOSE:2 UNIT(S)
  4. GLIBENCLAMIDE [Suspect]
     Active Substance: GLYBURIDE
     Indication: NEONATAL DIABETES MELLITUS
     Route: 065

REACTIONS (1)
  - Ketoacidosis [Unknown]
